FAERS Safety Report 9866728 (Version 1)
Quarter: 2014Q1

REPORT INFORMATION
  Report Type: Spontaneous
  Country: US (occurrence: US)
  Receive Date: 20140204
  Receipt Date: 20140204
  Transmission Date: 20141002
  Serious: No
  Sender: FDA-Public Use
  Company Number: US-BIOGENIDEC-2014BI008992

PATIENT
  Age: 38 Year
  Sex: Male

DRUGS (1)
  1. TECFIDERA [Suspect]
     Indication: MULTIPLE SCLEROSIS
     Dates: start: 20131203

REACTIONS (4)
  - Asthenia [Unknown]
  - Vision blurred [Unknown]
  - Hypoaesthesia [Unknown]
  - Multiple sclerosis relapse [Unknown]
